FAERS Safety Report 6058566-4 (Version None)
Quarter: 2009Q1

REPORT INFORMATION
  Report Type: 
  Country: None (occurrence: None)
  Receive Date: 20090130
  Receipt Date: 20090129
  Transmission Date: 20090719
  Serious: Yes (Death)
  Sender: FDA-Public Use
  Company Number: CA-ASTRAZENECA-2007UW24552

PATIENT
  Age: 75 Year
  Sex: Female

DRUGS (12)
  1. OMEPRAZOLE [Suspect]
     Route: 048
  2. ALENDRONATE SODIUM [Suspect]
  3. COMBIVENT [Suspect]
  4. FLOVENT [Suspect]
  5. LASIX [Suspect]
  6. LIPITOR [Suspect]
  7. METFORMIN [Suspect]
  8. NITRAZADON [Suspect]
  9. PLAQUENIL [Suspect]
  10. PREDNISONE [Suspect]
  11. SEREVENT [Suspect]
  12. TYLENOL [Suspect]

REACTIONS (2)
  - CHEST DISCOMFORT [None]
  - DEATH [None]
